FAERS Safety Report 8271893-5 (Version None)
Quarter: 2012Q2

REPORT INFORMATION
  Report Type: 
  Country: None (occurrence: None)
  Receive Date: 20120410
  Receipt Date: 20120402
  Transmission Date: 20120825
  Serious: Yes (Disabling, Other)
  Sender: FDA-Public Use
  Company Number: BR-US-EMD SERONO, INC.-7070672

PATIENT
  Sex: Female

DRUGS (5)
  1. PREDNISONE TAB [Suspect]
     Indication: PRODUCT USED FOR UNKNOWN INDICATION
  2. VENLAFAXINE [Concomitant]
  3. PRIMID [Concomitant]
  4. REBIF [Suspect]
     Indication: RELAPSING-REMITTING MULTIPLE SCLEROSIS
     Route: 058
     Dates: start: 20110204
  5. OMEPRAZOLE [Concomitant]

REACTIONS (4)
  - DEPRESSED MOOD [None]
  - WALKING DISABILITY [None]
  - SUICIDAL IDEATION [None]
  - OSTEOPOROSIS [None]
